FAERS Safety Report 5743330-3 (Version None)
Quarter: 2008Q2

REPORT INFORMATION
  Report Type: 
  Country: None (occurrence: None)
  Receive Date: 20080519
  Receipt Date: 20080514
  Transmission Date: 20081010
  Serious: Yes (Other)
  Sender: FDA-Public Use
  Company Number: US-PFIZER INC-2008041508

PATIENT
  Sex: Male
  Weight: 88.636 kg

DRUGS (1)
  1. DETROL LA [Suspect]
     Indication: PROSTATOMEGALY
     Dates: start: 20080506, end: 20080514

REACTIONS (2)
  - CATHETER RELATED COMPLICATION [None]
  - PROSTATOMEGALY [None]
